FAERS Safety Report 25039076 (Version 2)
Quarter: 2025Q1

REPORT INFORMATION
  Report Type: Spontaneous
  Country: GB (occurrence: GB)
  Receive Date: 20250305
  Receipt Date: 20250313
  Transmission Date: 20250409
  Serious: Yes (Hospitalization)
  Sender: ROCHE
  Company Number: GB-ROCHE-10000224081

PATIENT
  Age: 34 Year
  Sex: Female

DRUGS (1)
  1. EVRYSDI [Suspect]
     Active Substance: RISDIPLAM
     Indication: Spinal muscular atrophy
     Route: 065

REACTIONS (3)
  - Hyperpyrexia [Unknown]
  - Pneumonia [Unknown]
  - Infection [Unknown]
